FAERS Safety Report 19454825 (Version 1)
Quarter: 2021Q2

REPORT INFORMATION
  Report Type: Spontaneous
  Country: US (occurrence: US)
  Receive Date: 20210623
  Receipt Date: 20210623
  Transmission Date: 20210717
  Serious: Yes (Other)
  Sender: FDA-Public Use
  Company Number: US-GLAXOSMITHKLINE-US2021GSK134276

PATIENT
  Sex: Female

DRUGS (12)
  1. ZANTAC [Suspect]
     Active Substance: RANITIDINE HYDROCHLORIDE
     Indication: DYSPEPSIA
     Dosage: 75 MG BOTH, PERIODS OF NON?USE
     Route: 065
     Dates: start: 199012, end: 202001
  2. ZANTAC [Suspect]
     Active Substance: RANITIDINE HYDROCHLORIDE
     Indication: DYSPEPSIA
     Dosage: 150 MG, PERIODS OF NON?USE
     Route: 065
     Dates: start: 199012, end: 202001
  3. RANITIDINE CAPSULE [Suspect]
     Active Substance: RANITIDINE
     Indication: DYSPEPSIA
     Dosage: 75 MG BOTH, PERIODS OF NON?USE
     Route: 065
     Dates: start: 199012, end: 200001
  4. RANITIDINE. [Suspect]
     Active Substance: RANITIDINE
     Indication: DYSPEPSIA
     Dosage: 150 MG, PERIODS OF NON?USE
     Route: 065
     Dates: start: 199012, end: 200001
  5. RANITIDINE. [Suspect]
     Active Substance: RANITIDINE
     Indication: DYSPEPSIA
     Dosage: 75 MG BOTH, PERIODS OF NON?USE
     Route: 065
     Dates: start: 199012, end: 200001
  6. RANITIDINE. [Suspect]
     Active Substance: RANITIDINE
     Indication: DYSPEPSIA
     Dosage: 150 MG, PERIODS OF NON?USE
     Route: 065
     Dates: start: 199012, end: 200001
  7. RANITIDINE. [Suspect]
     Active Substance: RANITIDINE
     Indication: DYSPEPSIA
     Dosage: 150 MG, PERIODS OF NON?USE
     Route: 065
     Dates: start: 199012, end: 200001
  8. RANITIDINE CAPSULE [Suspect]
     Active Substance: RANITIDINE
     Indication: DYSPEPSIA
     Dosage: 150 MG, PERIODS OF NON?USE
     Route: 065
     Dates: start: 199012, end: 200001
  9. ZANTAC [Suspect]
     Active Substance: RANITIDINE HYDROCHLORIDE
     Indication: DYSPEPSIA
     Dosage: 75 MG BOTH, PERIODS OF NON?USE
     Route: 065
     Dates: start: 199012, end: 202001
  10. ZANTAC [Suspect]
     Active Substance: RANITIDINE HYDROCHLORIDE
     Indication: DYSPEPSIA
     Dosage: 150 MG, PERIODS OF NON?USE
     Route: 065
     Dates: start: 199012, end: 202001
  11. RANITIDINE. [Suspect]
     Active Substance: RANITIDINE
     Indication: DYSPEPSIA
     Dosage: 75 MG BOTH, PERIODS OF NON?USE
     Route: 065
     Dates: start: 199012, end: 200001
  12. RANITIDINE. [Suspect]
     Active Substance: RANITIDINE
     Indication: DYSPEPSIA
     Dosage: 75 MG BOTH, PERIODS OF NON?USE
     Route: 065
     Dates: start: 199012, end: 200001

REACTIONS (2)
  - Thyroid cancer [Unknown]
  - Breast cancer [Unknown]
